FAERS Safety Report 4370390-7 (Version None)
Quarter: 2004Q2

REPORT INFORMATION
  Report Type: 
  Country: None (occurrence: None)
  Receive Date: 20040603
  Receipt Date: 20040226
  Transmission Date: 20050107
  Serious: No
  Sender: FDA-Public Use
  Company Number: US-BRISTOL-MYERS SQUIBB COMPANY-12517694

PATIENT
  Age: 52 Year
  Sex: Male
  Weight: 147 kg

DRUGS (1)
  1. ABILIFY [Suspect]
     Indication: SCHIZOAFFECTIVE DISORDER
     Dosage: INITIAL DOSE: 15 MG/DAY; DECREASED TO 7.5 MG/DAY; INCREASED TO 10 MG/DAY
     Route: 048

REACTIONS (3)
  - BLOOD PRESSURE INCREASED [None]
  - HYPERSOMNIA [None]
  - WEIGHT INCREASED [None]
